FAERS Safety Report 5107569-2 (Version None)
Quarter: 2006Q3

REPORT INFORMATION
  Report Type: 
  Country: None (occurrence: None)
  Receive Date: 20060914
  Receipt Date: 20060901
  Transmission Date: 20061208
  Serious: Yes (Life-Threatening)
  Sender: FDA-Public Use
  Company Number: S06-GER-03390-01

PATIENT
  Age: 85 Year
  Sex: Female

DRUGS (3)
  1. CITALOPRAM HYDROBROMIDE [Suspect]
     Indication: DEPRESSION
     Dosage: 20 MG QD PO
     Route: 048
  2. TOREM (TORASEMIDE) [Concomitant]
  3. MOVICOL [Concomitant]

REACTIONS (2)
  - TORSADE DE POINTES [None]
  - VENTRICULAR FIBRILLATION [None]
